FAERS Safety Report 6993193-3 (Version None)
Quarter: 2010Q3

REPORT INFORMATION
  Report Type: 
  Country: None (occurrence: None)
  Receive Date: 20100917
  Receipt Date: 20100527
  Transmission Date: 20110219
  Serious: Yes (Other)
  Sender: FDA-Public Use
  Company Number: US-ASTRAZENECA-2007UW10078

PATIENT
  Age: 17006 Day
  Sex: Female

DRUGS (8)
  1. SEROQUEL [Suspect]
     Route: 048
     Dates: start: 20030121
  2. HYDROCODON /W ACETAMINOPHENE [Concomitant]
     Dates: start: 20030115
  3. CARISOPRODOL [Concomitant]
     Dates: start: 20030128
  4. NEURONTIN [Concomitant]
     Dates: start: 20030128
  5. CELEBREX [Concomitant]
     Dates: start: 20030128
  6. TEMAZEPAM [Concomitant]
     Dates: start: 20030202
  7. CLONAZEPAM [Concomitant]
     Dates: start: 20030204
  8. ZOLOFT [Concomitant]
     Dates: start: 20030204

REACTIONS (2)
  - PANCREATITIS [None]
  - TYPE 2 DIABETES MELLITUS [None]
